FAERS Safety Report 8816970 (Version 1)
Quarter: 2012Q4

REPORT INFORMATION
  Report Type: Spontaneous
  Country: US (occurrence: None)
  Receive Date: 20121002
  Receipt Date: 20121002
  Transmission Date: 20130627
  Serious: Yes (Other)
  Sender: FDA-Public Use
  Company Number: None

PATIENT
  Age: 72 Year
  Sex: Female
  Weight: 58.97 kg

DRUGS (1)
  1. LEVOFLOXACIN [Suspect]
     Dosage: Once a day

REACTIONS (6)
  - Oedema peripheral [None]
  - Dyspnoea [None]
  - Gait disturbance [None]
  - Skin discolouration [None]
  - Tendon pain [None]
  - Pain [None]
